FAERS Safety Report 7678213-5 (Version None)
Quarter: 2011Q3

REPORT INFORMATION
  Report Type: 
  Country: None (occurrence: None)
  Receive Date: 20110811
  Receipt Date: 20110808
  Transmission Date: 20111222
  Serious: Yes (Other)
  Sender: FDA-Public Use
  Company Number: US-ELI_LILLY_AND_COMPANY-US201002004008

PATIENT
  Sex: Female
  Weight: 117.91 kg

DRUGS (2)
  1. METFORMIN HCL [Concomitant]
     Dosage: 500 MG, UNKNOWN
     Dates: start: 20030507, end: 20060405
  2. BYETTA [Suspect]
     Dosage: UNK, UNKNOWN
     Route: 065
     Dates: start: 20070101, end: 20080501

REACTIONS (1)
  - PANCREATITIS [None]
